FAERS Safety Report 5027468-4 (Version None)
Quarter: 2006Q2

REPORT INFORMATION
  Report Type: 
  Country: None (occurrence: None)
  Receive Date: 20060501
  Receipt Date: 20060131
  Transmission Date: 20061013
  Serious: No
  Sender: FDA-Public Use
  Company Number: 200610609BWH

PATIENT
  Age: 70 Year
  Sex: Female

DRUGS (7)
  1. NEXAVAR [Suspect]
     Indication: RENAL CELL CARCINOMA STAGE UNSPECIFIED
     Dosage: 400 MG, BID, ORAL
     Route: 048
     Dates: start: 20060126
  2. FLORIDEX (HERB) [Concomitant]
  3. PRILOSEC [Concomitant]
  4. MS CONTIN [Concomitant]
  5. MS SR [Concomitant]
  6. COMPAZINE [Concomitant]
  7. SENOKOT [Concomitant]

REACTIONS (6)
  - ERYTHEMA [None]
  - FACIAL PAIN [None]
  - FLUSHING [None]
  - HOT FLUSH [None]
  - SKIN HYPERTROPHY [None]
  - SWELLING FACE [None]
